FAERS Safety Report 18365123 (Version 1)
Quarter: 2020Q4

REPORT INFORMATION
  Report Type: Spontaneous
  Country: US (occurrence: US)
  Receive Date: 20201009
  Receipt Date: 20201009
  Transmission Date: 20210114
  Serious: No
  Sender: FDA-Public Use
  Company Number: None

PATIENT
  Age: 62 Year

DRUGS (1)
  1. REMDESIVIR. [Suspect]
     Active Substance: REMDESIVIR
     Dates: start: 20200909, end: 20200913

REACTIONS (3)
  - Blood glucose increased [None]
  - Bradycardia [None]
  - Blood sodium decreased [None]
